FAERS Safety Report 11125458 (Version 1)
Quarter: 2015Q2

REPORT INFORMATION
  Report Type: Report from Study
  Country: US (occurrence: US)
  Receive Date: 20150520
  Receipt Date: 20150520
  Transmission Date: 20150821
  Serious: Yes (Death, Hospitalization)
  Sender: FDA-Public Use
  Company Number: US-PFIZER INC-2015103193

PATIENT
  Age: 69 Year
  Sex: Male
  Weight: 96.5 kg

DRUGS (6)
  1. PLACEBO [Suspect]
     Active Substance: UNSPECIFIED INGREDIENT
     Indication: COLON CANCER
     Dosage: 400 MG, CYCLIC (PO QD STARTING ON DAY 1 OF CYCLE 2 OF FOLFOX, CONTINUED TO 3 YEARS)
     Route: 048
     Dates: start: 20141217, end: 20150211
  2. LEUCOVORIN [Concomitant]
     Active Substance: LEUCOVORIN
     Indication: COLON CANCER
     Dosage: 400 MG/M2, CYCLIC (OVER 2 HOURS ON DAY 1)
     Route: 042
     Dates: start: 20141203, end: 20150128
  3. 5-FU [Concomitant]
     Active Substance: FLUOROURACIL
     Dosage: 2400 MG/M2, CYCLIC (OVER 46-48 HOURS ON DAY 1)
     Route: 042
     Dates: start: 20141203, end: 20150128
  4. OXALIPLATIN. [Concomitant]
     Active Substance: OXALIPLATIN
     Indication: COLON CANCER
     Dosage: 85 MG/M2, CYCLIC (OVER 2 HOURS ON DAY 1)
     Route: 042
     Dates: start: 20141203, end: 20150128
  5. BLINDED CELECOXIB [Suspect]
     Active Substance: CELECOXIB
     Indication: COLON CANCER
     Dosage: 400 MG, CYCLIC (PO QD STARTING ON DAY 1 OF CYCLE 2 OF FOLFOX, CONTINUED TO 3 YEARS)
     Route: 048
     Dates: start: 20141217, end: 20150211
  6. 5-FU [Concomitant]
     Active Substance: FLUOROURACIL
     Indication: COLON CANCER
     Dosage: 400 MG/M2, CYCLIC(ON DAY 1 FOLLOWED BY)
     Route: 040
     Dates: start: 20141203, end: 20150128

REACTIONS (1)
  - Death [Fatal]

NARRATIVE: CASE EVENT DATE: 20150302
